FAERS Safety Report 8144444-3 (Version None)
Quarter: 2012Q1

REPORT INFORMATION
  Report Type: 
  Country: None (occurrence: None)
  Receive Date: 20120103
  Receipt Date: 20110929
  Transmission Date: 20120608
  Serious: No
  Sender: FDA-Public Use
  Company Number: AE-2011-001634

PATIENT
  Age: 55 Year
  Sex: Female
  Weight: 97.5234 kg

DRUGS (7)
  1. INCIVEK [Suspect]
     Dosage: (3 IN 1 D)
     Dates: start: 20110915
  2. PEGASYS [Concomitant]
  3. OXYCODONE HCL [Concomitant]
  4. COPEGUS [Concomitant]
  5. PROZAC [Concomitant]
  6. KLONOPIN (CLONOZEPAM) [Concomitant]
  7. NEURONTIN [Concomitant]

REACTIONS (2)
  - RASH [None]
  - PRURITUS [None]
